FAERS Safety Report 11698670 (Version 1)
Quarter: 2015Q4

REPORT INFORMATION
  Report Type: Spontaneous
  Country: US (occurrence: US)
  Receive Date: 20151104
  Receipt Date: 20151104
  Transmission Date: 20160304
  Serious: No
  Sender: FDA-Public Use
  Company Number: US-ELI_LILLY_AND_COMPANY-US201011007560

PATIENT
  Sex: Female

DRUGS (1)
  1. FORTEO [Suspect]
     Active Substance: TERIPARATIDE
     Indication: OSTEOPOROSIS
     Dosage: 20 UG, DAILY (1/D)
     Dates: end: 20110105

REACTIONS (5)
  - Nausea [Recovering/Resolving]
  - Autoimmune disorder [Unknown]
  - Injection site pain [Unknown]
  - Injection site bruising [Unknown]
  - Retching [Not Recovered/Not Resolved]
